FAERS Safety Report 18194101 (Version 2)
Quarter: 2020Q3

REPORT INFORMATION
  Report Type: Spontaneous
  Country: NL (occurrence: NL)
  Receive Date: 20200825
  Receipt Date: 20200826
  Transmission Date: 20201103
  Serious: Yes (Other)
  Sender: FDA-Public Use
  Company Number: NL-JNJFOC-20200824504

PATIENT
  Sex: Female
  Weight: 56 kg

DRUGS (6)
  1. DUROGESIC [Suspect]
     Active Substance: FENTANYL
     Indication: PAIN
     Route: 065
     Dates: start: 202006
  2. OXAZEPAM. [Concomitant]
     Active Substance: OXAZEPAM
     Route: 065
  3. DUROGESIC [Suspect]
     Active Substance: FENTANYL
     Indication: PALLIATIVE CARE
     Dosage: 1 X PER 3 DAYS
     Route: 065
  4. DUROGESIC [Suspect]
     Active Substance: FENTANYL
     Route: 065
  5. OXYCODON [Concomitant]
     Active Substance: OXYCODONE
     Route: 065
  6. METOCLOPRAMIDE. [Concomitant]
     Active Substance: METOCLOPRAMIDE
     Route: 065

REACTIONS (2)
  - Tardive dyskinesia [Recovering/Resolving]
  - Somnolence [Unknown]
